FAERS Safety Report 4780460-7 (Version None)
Quarter: 2005Q3

REPORT INFORMATION
  Report Type: 
  Country: None (occurrence: None)
  Receive Date: 20050927
  Receipt Date: 20050916
  Transmission Date: 20060218
  Serious: Yes (Hospitalization)
  Sender: FDA-Public Use
  Company Number: US-AMGEN-US150992

PATIENT
  Sex: Female

DRUGS (4)
  1. PROCRIT [Suspect]
     Indication: ANAEMIA
     Dates: start: 19990101
  2. ZANAFLEX [Concomitant]
  3. CARDIZEM [Concomitant]
  4. SYNTHROID [Concomitant]

REACTIONS (3)
  - ASTHENIA [None]
  - GASTROINTESTINAL ANGIODYSPLASIA HAEMORRHAGIC [None]
  - PNEUMONIA ASPIRATION [None]
